FAERS Safety Report 6964028-X (Version None)
Quarter: 2010Q3

REPORT INFORMATION
  Report Type: 
  Country: None (occurrence: None)
  Receive Date: 20100902
  Receipt Date: 20100902
  Transmission Date: 20110219
  Serious: Yes (Hospitalization)
  Sender: FDA-Public Use
  Company Number: None

PATIENT
  Age: 63 Year
  Sex: Male
  Weight: 80 kg

DRUGS (2)
  1. ACETAMINOPHEN W/ PROPOXYPHENE HCL [Suspect]
     Indication: PAIN
     Dosage: 1 TAB BID PO
     Route: 048
     Dates: start: 20051002, end: 20100729
  2. MORPHINE [Suspect]
     Indication: PAIN
     Dosage: 15 NG BID PO
     Route: 048
     Dates: start: 20051003, end: 20100729

REACTIONS (1)
  - INTESTINAL OBSTRUCTION [None]
